FAERS Safety Report 6063469-5 (Version None)
Quarter: 2009Q1

REPORT INFORMATION
  Report Type: 
  Country: None (occurrence: None)
  Receive Date: 20090203
  Receipt Date: 20090129
  Transmission Date: 20090719
  Serious: No
  Sender: FDA-Public Use
  Company Number: US-B.I. PHARMACEUTICALS,INC./RIDGEFIELD-2009-BP-01141BP

PATIENT
  Sex: Male

DRUGS (4)
  1. SPIRIVA [Suspect]
     Indication: POSTNASAL DRIP
     Dosage: 18MCG
     Route: 055
     Dates: start: 20090114, end: 20090118
  2. SPIRIVA [Suspect]
     Dosage: 18MCG
     Route: 055
     Dates: start: 20090127
  3. ATENOLOL [Concomitant]
     Indication: HYPERTENSION
     Dosage: 25MG
     Route: 048
  4. ASPIRIN [Concomitant]
     Indication: PROPHYLAXIS
     Dosage: 81MG
     Route: 048

REACTIONS (2)
  - ABDOMINAL HERNIA [None]
  - DRUG INEFFECTIVE [None]
